FAERS Safety Report 7163366-8 (Version None)
Quarter: 2010Q4

REPORT INFORMATION
  Report Type: 
  Country: None (occurrence: None)
  Receive Date: 20101215
  Receipt Date: 20100406
  Transmission Date: 20110411
  Serious: Yes (Other)
  Sender: FDA-Public Use
  Company Number: BR-PFIZER INC-2010043365

PATIENT
  Age: 72 Year
  Sex: Female
  Weight: 63 kg

DRUGS (2)
  1. LYRICA [Suspect]
     Indication: FIBROMYALGIA
     Dosage: UNK
     Route: 048
     Dates: start: 20100201
  2. SERTRALINE [Concomitant]
     Indication: DEPRESSION
     Dosage: UNK

REACTIONS (3)
  - DYSGEUSIA [None]
  - HAEMATOCHEZIA [None]
  - SKIN ATROPHY [None]
